FAERS Safety Report 12532180 (Version 2)
Quarter: 2016Q3

REPORT INFORMATION
  Report Type: Spontaneous
  Country: BE (occurrence: BE)
  Receive Date: 20160706
  Receipt Date: 20160728
  Transmission Date: 20161109
  Serious: Yes (Death, Hospitalization)
  Sender: FDA-Public Use
  Company Number: BE-B.I. PHARMACEUTICALS,INC./RIDGEFIELD-2016-BI-42945BL

PATIENT
  Age: 60 Year
  Sex: Male

DRUGS (3)
  1. PRAXBIND [Suspect]
     Active Substance: IDARUCIZUMAB
     Indication: OESOPHAGEAL VARICES HAEMORRHAGE
     Route: 065
  2. PRADAXA [Concomitant]
     Active Substance: DABIGATRAN ETEXILATE MESYLATE
     Indication: PULMONARY EMBOLISM
     Dosage: 110 MG
     Route: 065
  3. PRAXBIND [Suspect]
     Active Substance: IDARUCIZUMAB
     Indication: OESOPHAGEAL VARICEAL LIGATION

REACTIONS (5)
  - Oesophageal varices haemorrhage [Fatal]
  - Hepatic failure [Fatal]
  - Anuria [Unknown]
  - Hypoglycaemia [Unknown]
  - Multiple organ dysfunction syndrome [Unknown]
